FAERS Safety Report 8789753 (Version 1)
Quarter: 2012Q4

REPORT INFORMATION
  Report Type: Spontaneous
  Country: GB (occurrence: None)
  Receive Date: 20120906
  Receipt Date: 20120906
  Transmission Date: 20130627
  Serious: Yes (Hospitalization)
  Sender: FDA-Public Use
  Company Number: GB-DEXPHARM-20121130

PATIENT
  Age: 69 Year
  Sex: Female

DRUGS (23)
  1. SALBUTAMOL [Suspect]
  2. HYOSCINE BUTYLBROMIDE [Suspect]
  3. HYOSCINE BUTYLBROMIDE [Suspect]
     Dosage: sep. dosages/interval: 2 in 1 day
  4. PAROXETINE [Suspect]
  5. PAROXETINE [Suspect]
     Dosage: sep. dosages/ interval: 1 in 1 day
  6. LANSOPRAZOLE [Suspect]
  7. LANSOPRAZOLE [Suspect]
     Dosage: SEP: DOSAGES/INTERVAL: 1 IN 1 DAY
  8. ISOSORBIDE MONONITRATE [Suspect]
  9. ISOSORBIDE MONONITRATE [Suspect]
     Dosage: SEP. DOSAGE/ interval: 1 in 1 day
  10. ASPIRIN [Suspect]
  11. ASPIRIN [Suspect]
     Dosage: sep. dosage/interval: 1 in 1 day
  12. FELODIPINE [Suspect]
  13. FELODIPINE [Suspect]
     Dosage: sep. dosage/interval: 1 in 1 day
  14. CYCLIZINE [Suspect]
  15. CYCLIZINE [Suspect]
     Dosage: sep. dosages/interval: 3  in 1 day
  16. DIAZEPAM [Suspect]
  17. DIAZEPAM [Suspect]
     Dosage: sep. dosages/interval: 2 in 1 day
  18. FUROSEMIDE [Suspect]
  19. FUROSEMIDE [Suspect]
     Dosage: sep. dosages/interval: 1 in day
  20. GLICLAZIDE [Suspect]
  21. GLICLAZIDE [Suspect]
     Dosage: SEP.DOSAGES/INTERVAL: 2 in 1 day
  22. SIMVASTATIN [Suspect]
  23. SIMVASTATIN [Suspect]
     Dosage: sep. dosages/interval: 1 in 1 day

REACTIONS (1)
  - Angioedema [None]
